FAERS Safety Report 6223064-1 (Version None)
Quarter: 2009Q2

REPORT INFORMATION
  Report Type: 
  Country: None (occurrence: None)
  Receive Date: 20090609
  Receipt Date: 20090603
  Transmission Date: 20091009
  Serious: Yes (Hospitalization)
  Sender: FDA-Public Use
  Company Number: ADR2292009

PATIENT
  Age: 45 Year
  Sex: Female

DRUGS (3)
  1. ALENDRONATE SODIUM [Suspect]
     Indication: OSTEOPOROSIS
     Dosage: 70 MG/WEEK
  2. SALMETEROL [Concomitant]
  3. FLUTICASONE [Concomitant]

REACTIONS (3)
  - ASTHMA [None]
  - HYPOXIA [None]
  - TACHYCARDIA [None]
